FAERS Safety Report 15167145 (Version 2)
Quarter: 2018Q3

REPORT INFORMATION
  Report Type: Spontaneous
  Country: US (occurrence: US)
  Receive Date: 20180719
  Receipt Date: 20180913
  Transmission Date: 20181010
  Serious: No
  Sender: FDA-Public Use
  Company Number: US-PFIZER INC-2018291160

PATIENT
  Age: 87 Year
  Sex: Female

DRUGS (2)
  1. ADVIL LIQUI?GELS [Suspect]
     Active Substance: IBUPROFEN
     Dosage: UNK
  2. ADVIL LIQUI?GELS [Suspect]
     Active Substance: IBUPROFEN
     Dosage: UNK
     Dates: start: 20180716, end: 20180716

REACTIONS (2)
  - Pain [Unknown]
  - Drug ineffective [Unknown]

NARRATIVE: CASE EVENT DATE: 20180716
